FAERS Safety Report 20523348 (Version 1)
Quarter: 2022Q1

REPORT INFORMATION
  Report Type: Spontaneous
  Country: FR (occurrence: FR)
  Receive Date: 20220227
  Receipt Date: 20220227
  Transmission Date: 20220423
  Serious: Yes (Other)
  Sender: FDA-Public Use
  Company Number: FR-AFSSAPS-DJ20220358

PATIENT
  Age: 85 Year
  Sex: Female

DRUGS (12)
  1. OXYCODONE [Suspect]
     Active Substance: OXYCODONE
     Indication: Gait disturbance
     Dosage: UNK
     Route: 065
     Dates: start: 20210922, end: 20210924
  2. CEFAZOLIN SODIUM [Suspect]
     Active Substance: CEFAZOLIN SODIUM
     Indication: Prophylaxis
     Dosage: 2 GRAM, 1 TOTAL
     Route: 042
     Dates: start: 20210922, end: 20210922
  3. EPHEDRINE HYDROCHLORIDE [Suspect]
     Active Substance: EPHEDRINE HYDROCHLORIDE
     Indication: Blood pressure management
     Dosage: 9 MILLIGRAM, 1 TOTAL
     Route: 042
     Dates: start: 20210922, end: 20210922
  4. HYDROXYZINE HYDROCHLORIDE [Suspect]
     Active Substance: HYDROXYZINE HYDROCHLORIDE
     Indication: Product used for unknown indication
     Dosage: 25 MILLIGRAM, ONCE A DAY
     Route: 048
     Dates: start: 20210922, end: 20210927
  5. KETAMINE [Suspect]
     Active Substance: KETAMINE
     Indication: General anaesthesia
     Dosage: 30 MILLIGRAM, 1 TOTAL
     Route: 042
     Dates: start: 20210922, end: 20210922
  6. LOVENOX [Suspect]
     Active Substance: ENOXAPARIN SODIUM
     Indication: Prophylaxis
     Dosage: UNK
     Route: 058
     Dates: start: 20210919, end: 20210923
  7. NEFOPAM [Suspect]
     Active Substance: NEFOPAM
     Indication: Gait disturbance
     Dosage: UNK (VARIABLE)
     Route: 048
     Dates: start: 20210919, end: 20210922
  8. ROPIVACAINE HYDROCHLORIDE [Suspect]
     Active Substance: ROPIVACAINE HYDROCHLORIDE
     Indication: Anaesthesia
     Dosage: 20 MILLIGRAM, 1 TOTAL
     Route: 050
     Dates: start: 20210922, end: 20210922
  9. NIMBEX [Suspect]
     Active Substance: CISATRACURIUM BESYLATE
     Indication: Neuromuscular blocking therapy
     Dosage: 16 MILLIGRAM, 1 TOTAL
     Route: 042
     Dates: start: 20210922, end: 20210922
  10. PROPOFOL LIPURO [Suspect]
     Active Substance: PROPOFOL
     Indication: General anaesthesia
     Dosage: UNK
     Route: 042
     Dates: start: 20210922, end: 20210922
  11. SUFENTANIL [Suspect]
     Active Substance: SUFENTANIL
     Indication: Analgesic therapy
     Dosage: 35 MICROGRAM, 1 TOTAL
     Route: 042
     Dates: start: 20210922, end: 20210922
  12. VENOFER [Suspect]
     Active Substance: IRON SUCROSE
     Indication: Anaemia
     Dosage: UNK (ON 23/09/2021 AND ON 25/09/2021)
     Route: 042
     Dates: start: 20210923, end: 20210925

REACTIONS (1)
  - Mixed liver injury [Recovering/Resolving]

NARRATIVE: CASE EVENT DATE: 20210929
